FAERS Safety Report 8774414 (Version 1)
Quarter: 2012Q4

REPORT INFORMATION
  Report Type: 
  Country: US (occurrence: US)
  Receive Date: 20120907
  Receipt Date: 20120907
  Transmission Date: 20130627
  Serious: No
  Sender: FDA-Public Use
  Company Number: US-VERTEX PHARMACEUTICAL INC.-2012-020238

PATIENT
  Sex: Male
  Weight: 88 kg

DRUGS (8)
  1. VX-950 [Suspect]
     Indication: HEPATITIS C
     Dosage: 750 mg, tid
     Route: 048
  2. PEGASYS [Suspect]
     Indication: HEPATITIS C
     Dosage: 180 ?g, UNK
     Route: 058
  3. RIBASPHERE [Concomitant]
     Indication: HEPATITIS C
     Dosage: 3 DF, bid
     Route: 048
  4. TRAMADOL [Concomitant]
     Dosage: 100 mg, UNK
     Route: 048
  5. AMITRIPTYLINE [Concomitant]
     Dosage: 25 mg, qd
     Route: 048
  6. OMEPRAZOLE [Concomitant]
     Dosage: 20 mg, UNK
     Route: 048
  7. APAP [Concomitant]
     Indication: INFLUENZA LIKE ILLNESS
  8. BENADRYL                           /00000402/ [Concomitant]
     Indication: PRURITUS

REACTIONS (3)
  - Influenza like illness [Unknown]
  - Fatigue [Unknown]
  - Pruritus generalised [Unknown]
